FAERS Safety Report 7924872 (Version 4)
Quarter: 2013Q2

REPORT INFORMATION
  Report Type: Report from Study
  Country: MX (occurrence: MX)
  Receive Date: 20110502
  Receipt Date: 20130530
  Transmission Date: 20140414
  Serious: Yes (Hospitalization)
  Sender: FDA-Public Use
  Company Number: PHHY2011MX34544

PATIENT
  Age: 62 Year
  Sex: Female

DRUGS (2)
  1. TRILEPTAL [Suspect]
     Indication: ANGIOPATHY
     Dosage: 2 TABLETS (300 MG) PER DAY
     Route: 048
     Dates: start: 20101005, end: 20110309
  2. TRILEPTAL [Suspect]
     Indication: OFF LABEL USE
     Dosage: 0.5 DF, (300 MG)
     Route: 048
     Dates: start: 20110309, end: 201104

REACTIONS (4)
  - Fall [Not Recovered/Not Resolved]
  - Injury [Unknown]
  - Sciatic nerve injury [Unknown]
  - Bone cyst [Unknown]
